FAERS Safety Report 20151625 (Version 1)
Quarter: 2021Q4

REPORT INFORMATION
  Report Type: Spontaneous
  Country: US (occurrence: US)
  Receive Date: 20211206
  Receipt Date: 20211206
  Transmission Date: 20220303
  Serious: No
  Sender: FDA-Public Use
  Company Number: US-MYLANLABS-2021M1087885

PATIENT
  Sex: Male
  Weight: 35.38 kg

DRUGS (3)
  1. CYSTAGON [Suspect]
     Active Substance: CYSTEAMINE BITARTRATE
     Indication: Cystinosis
     Dosage: 50 MILLIGRAM, Q6H
     Dates: start: 20181106
  2. CYSTAGON [Suspect]
     Active Substance: CYSTEAMINE BITARTRATE
     Dosage: 450 MILLIGRAM
  3. CYSTAGON [Suspect]
     Active Substance: CYSTEAMINE BITARTRATE
     Indication: Cystinosis
     Dosage: 150 MILLIGRAM, Q6H
     Dates: start: 20181106

REACTIONS (1)
  - Weight abnormal [Unknown]
